FAERS Safety Report 7467231-8 (Version None)
Quarter: 2011Q2

REPORT INFORMATION
  Report Type: 
  Country: None (occurrence: None)
  Receive Date: 20110509
  Receipt Date: 20110426
  Transmission Date: 20111010
  Serious: Yes (Other)
  Sender: FDA-Public Use
  Company Number: PHHY2011CN35835

PATIENT
  Age: 12 Year
  Sex: Male

DRUGS (3)
  1. CYCLOSPORINE [Suspect]
     Indication: APLASTIC ANAEMIA
     Dosage: 4 MG/KG, UNK
  2. CYCLOSPORINE [Suspect]
     Dosage: 50 MG, UNK
  3. SIROLIMUS [Concomitant]
     Dosage: 0.5 MG/D

REACTIONS (3)
  - HYPERTRIGLYCERIDAEMIA [None]
  - APLASTIC ANAEMIA [None]
  - HYPERCHOLESTEROLAEMIA [None]
